FAERS Safety Report 4791025-5 (Version None)
Quarter: 2005Q4

REPORT INFORMATION
  Report Type: 
  Country: None (occurrence: None)
  Receive Date: 20051007
  Receipt Date: 20050928
  Transmission Date: 20060501
  Serious: Yes (Hospitalization)
  Sender: FDA-Public Use
  Company Number: AU-JNJFOC-20050702050

PATIENT
  Sex: Male

DRUGS (7)
  1. REMINYL [Suspect]
     Indication: DRUG USE FOR UNKNOWN INDICATION
     Route: 048
  2. FUROSEMIDE [Concomitant]
     Route: 048
  3. RAMIPRIL [Concomitant]
     Route: 048
  4. SPIRONOLACTONE [Concomitant]
     Route: 048
  5. ASPIRIN [Concomitant]
     Route: 048
  6. FERRO LIQUID [Concomitant]
     Route: 048
  7. ASCORBIC ACID [Concomitant]
     Route: 048

REACTIONS (3)
  - DUODENAL ULCER PERFORATION [None]
  - MUSCLE RIGIDITY [None]
  - TREMOR [None]
